FAERS Safety Report 5399896-9 (Version None)
Quarter: 2007Q3

REPORT INFORMATION
  Report Type: 
  Country: None (occurrence: None)
  Receive Date: 20070725
  Receipt Date: 20070725
  Transmission Date: 20080115
  Serious: Yes (Other)
  Sender: FDA-Public Use
  Company Number: None

PATIENT
  Age: 77 Year
  Sex: Male
  Weight: 99.9 kg

DRUGS (1)
  1. LISINOPRIL [Suspect]

REACTIONS (1)
  - HYPERKALAEMIA [None]
